FAERS Safety Report 6293441-1 (Version None)
Quarter: 2009Q3

REPORT INFORMATION
  Report Type: 
  Country: None (occurrence: None)
  Receive Date: 20090803
  Receipt Date: 20090728
  Transmission Date: 20100115
  Serious: Yes (Hospitalization)
  Sender: FDA-Public Use
  Company Number: US-BIOGENIDEC-2009BI022204

PATIENT
  Age: 43 Year
  Sex: Female
  Weight: 70 kg

DRUGS (2)
  1. TYSABRI [Suspect]
     Indication: MULTIPLE SCLEROSIS
     Route: 042
     Dates: start: 20070205
  2. COUMADIN [Concomitant]
     Indication: ANTICOAGULANT THERAPY

REACTIONS (8)
  - APHAGIA [None]
  - INFECTION [None]
  - LOCAL SWELLING [None]
  - MEDICAL DEVICE IMPLANTATION [None]
  - POSTOPERATIVE WOUND INFECTION [None]
  - UTERINE LEIOMYOMA [None]
  - VASCULAR OCCLUSION [None]
  - VENA CAVA FILTER INSERTION [None]
